FAERS Safety Report 6011403-6 (Version None)
Quarter: 2008Q4

REPORT INFORMATION
  Report Type: 
  Country: None (occurrence: None)
  Receive Date: 20081218
  Receipt Date: 19981026
  Transmission Date: 20090506
  Serious: Yes (Death, Other)
  Sender: FDA-Public Use
  Company Number: ID-ROCHE-107913

PATIENT
  Age: 23 Year
  Sex: Female

DRUGS (1)
  1. TORADOL [Suspect]
     Indication: HEADACHE
     Route: 065

REACTIONS (4)
  - ANEURYSM [None]
  - CEREBRAL HAEMORRHAGE [None]
  - DEATH [None]
  - PRE-ECLAMPSIA [None]
